FAERS Safety Report 14950965 (Version 1)
Quarter: 2018Q2

REPORT INFORMATION
  Report Type: Spontaneous
  Country: JP (occurrence: JP)
  Receive Date: 20180530
  Receipt Date: 20180530
  Transmission Date: 20180711
  Serious: Yes (Hospitalization)
  Sender: FDA-Public Use
  Company Number: JP-FERRINGPH-2018FE02646

PATIENT

DRUGS (3)
  1. MENOTROPHIN [Suspect]
     Active Substance: MENOTROPINS
     Indication: OVULATION INDUCTION
     Dosage: 150 IU, 6 TIMES
     Route: 065
  2. CLOMIFENE [Suspect]
     Active Substance: CLOMIPHENE
     Indication: OVULATION INDUCTION
     Dosage: 50 MG, DAILY (10 DAYS)
     Route: 065
  3. GONADOTROPIN-RELEASING HORMONES [Suspect]
     Active Substance: GONADORELIN
     Indication: OVULATION INDUCTION
     Dosage: UNK
     Route: 065

REACTIONS (2)
  - Ovarian hyperstimulation syndrome [Unknown]
  - Cerebral infarction [Unknown]
